FAERS Safety Report 9334641 (Version 1)
Quarter: 2013Q2

REPORT INFORMATION
  Report Type: Spontaneous
  Country: US (occurrence: US)
  Receive Date: 20130606
  Receipt Date: 20130606
  Transmission Date: 20140414
  Serious: No
  Sender: FDA-Public Use
  Company Number: US-AMGEN-USASP2013004697

PATIENT
  Age: 89 Year
  Sex: Female

DRUGS (5)
  1. PROLIA [Suspect]
     Indication: OSTEOPOROSIS POSTMENOPAUSAL
     Dosage: UNK
  2. LIBRAX                             /00033301/ [Concomitant]
  3. XANAX [Concomitant]
  4. NEXIUM                             /01479302/ [Concomitant]
  5. THYROID [Concomitant]

REACTIONS (7)
  - Blood pressure fluctuation [Unknown]
  - Pain [Recovered/Resolved]
  - Myopathy [Recovered/Resolved]
  - Musculoskeletal pain [Not Recovered/Not Resolved]
  - Back pain [Not Recovered/Not Resolved]
  - Myalgia [Not Recovered/Not Resolved]
  - Pain in extremity [Not Recovered/Not Resolved]
